FAERS Safety Report 23873487 (Version 1)
Quarter: 2024Q2

REPORT INFORMATION
  Report Type: Spontaneous
  Country: US (occurrence: None)
  Receive Date: 20240517
  Receipt Date: 20240517
  Transmission Date: 20240716
  Serious: Yes (Hospitalization)
  Sender: FDA-Public Use
  Company Number: None

PATIENT
  Age: 60 Year
  Sex: Female
  Weight: 49.5 kg

DRUGS (1)
  1. AZATHIOPRINE [Suspect]
     Active Substance: AZATHIOPRINE
     Indication: Rheumatoid arthritis
     Dates: start: 20210715, end: 20210719

REACTIONS (4)
  - Documented hypersensitivity to administered product [None]
  - Drug hypersensitivity [None]
  - Adverse event [None]
  - Product prescribing error [None]

NARRATIVE: CASE EVENT DATE: 20210721
